FAERS Safety Report 17064043 (Version 1)
Quarter: 2019Q4

REPORT INFORMATION
  Report Type: Spontaneous
  Country: CA (occurrence: CA)
  Receive Date: 20191122
  Receipt Date: 20191122
  Transmission Date: 20200122
  Serious: Yes (Other)
  Sender: FDA-Public Use
  Company Number: CA-PFIZER INC-2019497711

PATIENT
  Sex: Female

DRUGS (12)
  1. FENTANYL. [Suspect]
     Active Substance: FENTANYL
  2. HETASTARCH. [Suspect]
     Active Substance: HETASTARCH
  3. GLYCOPYRRONIUM BROMIDE [Suspect]
     Active Substance: GLYCOPYRRONIUM
  4. PHENYLEPHRINE HCL [Suspect]
     Active Substance: PHENYLEPHRINE HYDROCHLORIDE
  5. EPHEDRINE HCL [Suspect]
     Active Substance: EPHEDRINE HYDROCHLORIDE
  6. SEEBRI BREEZHALER [Suspect]
     Active Substance: GLYCOPYRROLATE
  7. SODIUM CITRATE. [Suspect]
     Active Substance: SODIUM CITRATE
  8. MORPHINE SULFATE. [Suspect]
     Active Substance: MORPHINE SULFATE
  9. BUPIVACAINE HYDROCHLORIDE/FENTANYL [Suspect]
     Active Substance: BUPIVACAINE HYDROCHLORIDE\FENTANYL CITRATE
  10. EPINEPHRINE. [Suspect]
     Active Substance: EPINEPHRINE
  11. LIDOCAINE HCL [Suspect]
     Active Substance: LIDOCAINE HYDROCHLORIDE
  12. CALCIUM CHLORIDE/POTASSIUM CHLORIDE/SODIUM LACTATE [Suspect]
     Active Substance: CALCIUM CHLORIDE\POTASSIUM CHLORIDE\SODIUM LACTATE
     Route: 042

REACTIONS (4)
  - Hypotension [Unknown]
  - Bradycardia [Unknown]
  - Exposure during pregnancy [Unknown]
  - Live birth [Unknown]
